FAERS Safety Report 8416893-7 (Version None)
Quarter: 2012Q2

REPORT INFORMATION
  Report Type: 
  Country: None (occurrence: None)
  Receive Date: 20120606
  Receipt Date: 20120529
  Transmission Date: 20120825
  Serious: Yes (Hospitalization, Other)
  Sender: FDA-Public Use
  Company Number: PHHY2012FR027967

PATIENT
  Sex: Male

DRUGS (2)
  1. IMATINIB MESYLATE [Suspect]
     Indication: CHRONIC MYELOID LEUKAEMIA
     Dosage: 400 MG, DAILY
     Route: 048
     Dates: start: 20070503, end: 20120302
  2. LOW-SODIUM DIET [Suspect]
     Dosage: UNK UKN, UNK

REACTIONS (8)
  - RENAL FAILURE ACUTE [None]
  - BLOOD SODIUM INCREASED [None]
  - RESPIRATORY FAILURE [None]
  - FLUID RETENTION [None]
  - LUNG DISORDER [None]
  - DYSPNOEA [None]
  - CARDIAC DISORDER [None]
  - ELECTRIC SHOCK [None]
